FAERS Safety Report 4879850-3 (Version None)
Quarter: 2006Q1

REPORT INFORMATION
  Report Type: 
  Country: None (occurrence: None)
  Receive Date: 20060113
  Receipt Date: 20060109
  Transmission Date: 20060701
  Serious: Yes (Life-Threatening, Hospitalization, Disabling)
  Sender: FDA-Public Use
  Company Number: GB-BOEHRINGER INGELHEIM PHARMACEUTICALS, INC.-2006-UK-00060UK

PATIENT
  Age: 75 Year
  Sex: Female

DRUGS (5)
  1. DIPYRIDAMOLE [Suspect]
     Indication: TRANSIENT ISCHAEMIC ATTACK
     Dosage: 250 MG TWICE DAILY
     Route: 048
     Dates: end: 20051227
  2. ASPIRIN [Suspect]
     Indication: TRANSIENT ISCHAEMIC ATTACK
     Route: 048
     Dates: end: 20051227
  3. SERETIDE [Concomitant]
     Indication: BRONCHITIS
     Dosage: 2 PUFFS, TWICE DAILY
     Route: 055
  4. SALBUTAMOL [Concomitant]
     Indication: BRONCHITIS
     Dosage: 2 PUFFS, AS REQUIRED
     Route: 055
  5. OMEPRAZOLE [Concomitant]
     Indication: BRONCHITIS
     Route: 048

REACTIONS (4)
  - CONFUSIONAL STATE [None]
  - HEADACHE [None]
  - HEMIPARESIS [None]
  - SUBDURAL HAEMATOMA [None]
